FAERS Safety Report 4509647-5 (Version None)
Quarter: 2004Q4

REPORT INFORMATION
  Report Type: 
  Country: None (occurrence: None)
  Receive Date: 20041124
  Receipt Date: 20040218
  Transmission Date: 20050328
  Serious: Yes (Other)
  Sender: FDA-Public Use
  Company Number: 200413437EU

PATIENT
  Age: 23 Year
  Sex: Female

DRUGS (2)
  1. LANTUS [Suspect]
     Indication: DIABETES MELLITUS INSULIN-DEPENDENT
     Route: 058
     Dates: start: 20021203, end: 20030528
  2. INSULIN LISPRO [Concomitant]
     Indication: DIABETES MELLITUS INSULIN-DEPENDENT
     Route: 058

REACTIONS (6)
  - DRUG EXPOSURE DURING PREGNANCY [None]
  - GLYCOSYLATED HAEMOGLOBIN INCREASED [None]
  - INTRA-UTERINE DEATH [None]
  - MEDICATION ERROR [None]
  - PREGNANCY [None]
  - TREATMENT NONCOMPLIANCE [None]
